FAERS Safety Report 25201433 (Version 1)
Quarter: 2025Q2

REPORT INFORMATION
  Report Type: Report from Study
  Country: GB (occurrence: GB)
  Receive Date: 20250416
  Receipt Date: 20250416
  Transmission Date: 20250716
  Serious: Yes (Death)
  Sender: ABBVIE
  Company Number: GB-ABBVIE-6232174

PATIENT
  Sex: Male

DRUGS (1)
  1. HUMIRA [Suspect]
     Active Substance: ADALIMUMAB
     Indication: Ankylosing spondylitis
     Dosage: HUMIRA 40MG/0.4ML SOLUTION FOR INJECTION PRE-FILLED PENS (ABBVIE LTD) 2 PRE-FILLED?DISPOSABLE INJ...
     Route: 058

REACTIONS (1)
  - Death [Fatal]
